FAERS Safety Report 8013101-6 (Version None)
Quarter: 2011Q4

REPORT INFORMATION
  Report Type: 
  Country: None (occurrence: None)
  Receive Date: 20111229
  Receipt Date: 20111219
  Transmission Date: 20120403
  Serious: Yes (Life-Threatening, Hospitalization, Other)
  Sender: FDA-Public Use
  Company Number: FR-PFIZER INC-2011314099

PATIENT
  Age: 74 Year
  Sex: Male

DRUGS (4)
  1. CORDARONE [Suspect]
     Indication: ARRHYTHMIA SUPRAVENTRICULAR
     Dosage: 200 MG, DAILY
     Route: 048
     Dates: start: 20110721, end: 20110730
  2. METOPROLOL TARTRATE [Suspect]
     Indication: ARRHYTHMIA SUPRAVENTRICULAR
     Dosage: 1.5 DOSAGE FORM, DAILY
     Route: 048
     Dates: start: 20110721, end: 20110730
  3. OMIX [Concomitant]
     Dosage: 1 DF, DAILY
     Route: 048
  4. ASPIRIN [Concomitant]
     Dosage: 75 MG, DAILY
     Route: 048
     Dates: end: 20110730

REACTIONS (1)
  - VENTRICULAR ASYSTOLE [None]
